FAERS Safety Report 5343690-1 (Version None)
Quarter: 2007Q2

REPORT INFORMATION
  Report Type: 
  Country: None (occurrence: None)
  Receive Date: 20070531
  Receipt Date: 20070531
  Transmission Date: 20071010
  Serious: No
  Sender: FDA-Public Use
  Company Number: None

PATIENT
  Age: 66 Year
  Sex: Female
  Weight: 76.2043 kg

DRUGS (1)
  1. ALTACE [Suspect]
     Dosage: 5 MG CAPSULES 1/DAY
     Dates: start: 20061001, end: 20061101

REACTIONS (5)
  - CRYING [None]
  - FLATULENCE [None]
  - MORBID THOUGHTS [None]
  - MUSCLE SPASMS [None]
  - SWELLING [None]
